FAERS Safety Report 4308745-9 (Version None)
Quarter: 2004Q1

REPORT INFORMATION
  Report Type: 
  Country: None (occurrence: None)
  Receive Date: 20040227
  Receipt Date: 20040218
  Transmission Date: 20041129
  Serious: Yes (Other)
  Sender: FDA-Public Use
  Company Number: 2004-113164-NL

PATIENT
  Age: 47 Year
  Sex: Male

DRUGS (3)
  1. REMERON [Suspect]
     Indication: DEPRESSION
  2. VENLAFAXINE [Suspect]
     Indication: DEPRESSION
  3. TRAMADOL [Suspect]
     Indication: PAIN

REACTIONS (10)
  - AGITATION [None]
  - CHILLS [None]
  - CONFUSIONAL STATE [None]
  - HYPERHIDROSIS [None]
  - HYPERREFLEXIA [None]
  - MYDRIASIS [None]
  - MYOCLONUS [None]
  - PYREXIA [None]
  - SEROTONIN SYNDROME [None]
  - TACHYCARDIA [None]
